FAERS Safety Report 19283015 (Version 1)
Quarter: 2021Q2

REPORT INFORMATION
  Report Type: Spontaneous
  Country: US (occurrence: US)
  Receive Date: 20210520
  Receipt Date: 20210520
  Transmission Date: 20210717
  Serious: No
  Sender: FDA-Public Use
  Company Number: None

PATIENT
  Sex: Female

DRUGS (8)
  1. TRULANCE [Suspect]
     Active Substance: PLECANATIDE
     Indication: IRRITABLE BOWEL SYNDROME
     Dosage: ?          QUANTITY:1 TABLET(S);?
     Route: 048
     Dates: start: 20210415, end: 20210503
  2. TOPICAL ESTRADIOL [Concomitant]
  3. FOOD?BASED IRON [Concomitant]
  4. CYMBALTA [Concomitant]
     Active Substance: DULOXETINE HYDROCHLORIDE
  5. I?B?3 CARBANOL [Concomitant]
  6. LOSE DOSE NALTREXONE [Concomitant]
  7. PROGESTERONE. [Concomitant]
     Active Substance: PROGESTERONE
  8. DIESTIVE ENZYMES [Concomitant]

REACTIONS (6)
  - Diarrhoea [None]
  - Feeling cold [None]
  - Heart rate increased [None]
  - Cough [None]
  - Tremor [None]
  - Feeling abnormal [None]

NARRATIVE: CASE EVENT DATE: 20210503
